FAERS Safety Report 19503408 (Version 2)
Quarter: 2022Q3

REPORT INFORMATION
  Report Type: Spontaneous
  Country: US (occurrence: None)
  Receive Date: 20210708
  Receipt Date: 20220907
  Transmission Date: 20221027
  Serious: Yes (Hospitalization)
  Sender: FDA-Public Use
  Company Number: US-FARMAPROD-202106-1023

PATIENT
  Age: 43 Year
  Sex: Female

DRUGS (1)
  1. OXERVATE [Suspect]
     Active Substance: CENEGERMIN-BKBJ
     Indication: Neurotrophic keratopathy
     Route: 047
     Dates: start: 20210615

REACTIONS (3)
  - Foot amputation [Unknown]
  - Lacrimation increased [Unknown]
  - Product administration error [Unknown]

NARRATIVE: CASE EVENT DATE: 20210628
